FAERS Safety Report 16508147 (Version 1)
Quarter: 2019Q3

REPORT INFORMATION
  Report Type: Spontaneous
  Country: US (occurrence: US)
  Receive Date: 20190702
  Receipt Date: 20190702
  Transmission Date: 20191004
  Serious: No
  Sender: FDA-Public Use
  Company Number: US-ROCHE-2144878

PATIENT
  Age: 68 Year
  Sex: Female

DRUGS (1)
  1. XELODA [Suspect]
     Active Substance: CAPECITABINE
     Indication: PRODUCT USED FOR UNKNOWN INDICATION
     Dosage: 1 MONTH
     Route: 048
     Dates: start: 20180607

REACTIONS (9)
  - Dysphagia [Unknown]
  - Nausea [Unknown]
  - Burning sensation [Unknown]
  - Gait inability [Unknown]
  - Rash [Unknown]
  - Pain [Unknown]
  - Paraesthesia [Unknown]
  - Fatigue [Unknown]
  - Arthralgia [Unknown]

NARRATIVE: CASE EVENT DATE: 20180621
